FAERS Safety Report 6006139-1 (Version None)
Quarter: 2008Q4

REPORT INFORMATION
  Report Type: 
  Country: None (occurrence: None)
  Receive Date: 20081217
  Receipt Date: 20080407
  Transmission Date: 20090506
  Serious: No
  Sender: FDA-Public Use
  Company Number: US-BAUSCH-2008BL001529

PATIENT
  Age: 56 Year
  Sex: Female

DRUGS (1)
  1. ZYLET [Suspect]
     Indication: SKIN LACERATION
     Route: 047
     Dates: start: 20080401, end: 20080403

REACTIONS (3)
  - CONDITION AGGRAVATED [None]
  - EYE PRURITUS [None]
  - EYELID OEDEMA [None]
